FAERS Safety Report 3978179 (Version 2)
Quarter: 2013Q2

REPORT INFORMATION
  Report Type: Spontaneous
  Country: US (occurrence: US)
  Receive Date: 20030804
  Receipt Date: 20130524
  Transmission Date: 20140414
  Serious: Yes (Hospitalization)
  Sender: FDA-Public Use
  Company Number: 2001COU1286

PATIENT
  Age: 64 Year
  Sex: Male
  Weight: 68.03 kg

DRUGS (10)
  1. COUMADIN TABS [Suspect]
     Indication: AORTIC VALVE REPLACEMENT
     Dosage: 7.5 MG/DAY FOR FIVE DAYS, AND 5 MG/DAY TWO DAYS PER WEEK
     Route: 048
  2. VITAMIN E [Concomitant]
  3. VITAMIN C [Concomitant]
  4. BABY ASPIRIN [Concomitant]
  5. VITAMIN B COMPLEX [Concomitant]
  6. ATENOLOL [Concomitant]
  7. ENALAPRIL [Concomitant]
  8. ASPIRIN [Concomitant]
  9. JANTOVEN [Concomitant]
     Dosage: 5 MG 4 DAYS AND 7.5 MG OTHER 3 DAYS PER WEEK
  10. FINASTERIDE [Concomitant]

REACTIONS (6)
  - Pericarditis [Recovering/Resolving]
  - Coronary artery dissection [Unknown]
  - Cholelithiasis [None]
  - Back pain [None]
  - Blood urine present [None]
  - Eye haemorrhage [Not Recovered/Not Resolved]
